FAERS Safety Report 6613085-9 (Version None)
Quarter: 2010Q1

REPORT INFORMATION
  Report Type: 
  Country: None (occurrence: None)
  Receive Date: 20100223
  Receipt Date: 20100210
  Transmission Date: 20100710
  Serious: Yes (Other)
  Sender: FDA-Public Use
  Company Number: 2010AL000970

PATIENT
  Sex: Female

DRUGS (2)
  1. LIDOCAINE HYDROCHLORIDE 2% [Suspect]
     Indication: PREMEDICATION
  2. SCULPTRA [Concomitant]

REACTIONS (1)
  - TRISMUS [None]
